FAERS Safety Report 8879513 (Version 1)
Quarter: 2012Q4

REPORT INFORMATION
  Report Type: 
  Country: US (occurrence: US)
  Receive Date: 20121101
  Receipt Date: 20121101
  Transmission Date: 20130627
  Serious: No
  Sender: FDA-Public Use
  Company Number: US-TEVA-367754USA

PATIENT
  Sex: Male
  Weight: 93.07 kg

DRUGS (10)
  1. AZILECT [Suspect]
     Indication: PARKINSON^S DISEASE
     Dosage: 1 Milligram Daily;
     Route: 048
     Dates: start: 20120925, end: 20121017
  2. MIDODRINE [Concomitant]
     Dosage: 20 Milligram Daily;
     Route: 048
  3. SINEMET [Concomitant]
     Indication: PARKINSON^S DISEASE
     Dosage: 25/100
     Route: 048
  4. SINEMET [Concomitant]
     Indication: PARKINSON^S DISEASE
     Dosage: 50/200
     Route: 048
  5. FLORINEF [Concomitant]
     Dosage: .1 Milligram Daily;
     Route: 048
  6. CYMBALTA [Concomitant]
     Dosage: 60 Milligram Daily;
  7. ENABLEX [Concomitant]
     Dosage: 15 Milligram Daily;
  8. REMERON [Concomitant]
     Dosage: 45 Milligram Daily;
  9. REQUIP [Concomitant]
     Dosage: 1 Milligram Daily;
  10. FLOMAX [Concomitant]
     Dosage: .4 Milligram Daily;

REACTIONS (1)
  - Urinary retention [Unknown]
